FAERS Safety Report 19309885 (Version 1)
Quarter: 2021Q2

REPORT INFORMATION
  Report Type: Spontaneous
  Country: DE (occurrence: DE)
  Receive Date: 20210526
  Receipt Date: 20210526
  Transmission Date: 20210717
  Serious: Yes (Other)
  Sender: FDA-Public Use
  Company Number: DE-009507513-2105DEU006045

PATIENT
  Age: 49 Year
  Sex: Female

DRUGS (2)
  1. TEMOZOLOMIDE. [Suspect]
     Active Substance: TEMOZOLOMIDE
     Indication: GLIOBLASTOMA
     Dosage: 100?200 MILLIGRAM/SQ. METER PER DAY ON DAYS 2?6 OF THE 6?WEEK COURSE
  2. LOMUSTINE. [Suspect]
     Active Substance: LOMUSTINE
     Indication: GLIOBLASTOMA
     Dosage: 100 MILLIGRAM/SQ. METER, ON DAY 1 (OF THE 6?WEEKS COURSE)

REACTIONS (1)
  - Tumour pseudoprogression [Unknown]
